FAERS Safety Report 7822730-1 (Version None)
Quarter: 2011Q4

REPORT INFORMATION
  Report Type: 
  Country: None (occurrence: None)
  Receive Date: 20111018
  Receipt Date: 20111007
  Transmission Date: 20120403
  Serious: Yes (Hospitalization, Other)
  Sender: FDA-Public Use
  Company Number: US-RB-032318-11

PATIENT
  Sex: Female

DRUGS (2)
  1. AMBIEN [Suspect]
     Indication: PRODUCT USED FOR UNKNOWN INDICATION
     Route: 048
     Dates: start: 20110916, end: 20110916
  2. SUBOXONE [Suspect]
     Indication: DRUG DEPENDENCE
     Route: 060
     Dates: start: 20110201

REACTIONS (13)
  - DEHYDRATION [None]
  - CONFUSIONAL STATE [None]
  - COMA [None]
  - DIZZINESS [None]
  - UTERINE LEIOMYOMA [None]
  - OVARIAN CYST [None]
  - FEELING ABNORMAL [None]
  - NAUSEA [None]
  - VOMITING [None]
  - RETCHING [None]
  - MEMORY IMPAIRMENT [None]
  - UTERINE CYST [None]
  - DELIRIUM [None]
